FAERS Safety Report 10357850 (Version 2)
Quarter: 2014Q3

REPORT INFORMATION
  Report Type: Report from Study
  Country: AU (occurrence: AU)
  Receive Date: 20140801
  Receipt Date: 20140818
  Transmission Date: 20150326
  Serious: Yes (Hospitalization, Other)
  Sender: FDA-Public Use
  Company Number: AU-BRISTOL-MYERS SQUIBB COMPANY-21253646

PATIENT
  Age: 60 Year
  Sex: Female

DRUGS (6)
  1. ORENCIA [Suspect]
     Active Substance: ABATACEPT
     Indication: RHEUMATOID ARTHRITIS
     Route: 042
     Dates: start: 20091010
  2. METHOTREXATE [Concomitant]
     Active Substance: METHOTREXATE
  3. PERINDOPRIL [Concomitant]
     Active Substance: PERINDOPRIL
  4. FOLIC ACID. [Concomitant]
     Active Substance: FOLIC ACID
  5. ASPIRIN. [Concomitant]
     Active Substance: ASPIRIN
  6. CHOLESTEROL MEDICATION [Concomitant]
     Active Substance: UNSPECIFIED INGREDIENT

REACTIONS (1)
  - Atrial fibrillation [Recovering/Resolving]

NARRATIVE: CASE EVENT DATE: 20140721
